FAERS Safety Report 26162482 (Version 1)
Quarter: 2025Q4

REPORT INFORMATION
  Report Type: Report from Study
  Country: EU (occurrence: EU)
  Receive Date: 20251216
  Receipt Date: 20251216
  Transmission Date: 20260118
  Serious: Yes (Other)
  Sender: ABBVIE
  Company Number: EU-ABBVIE-6581584

PATIENT
  Age: 67 Year
  Sex: Female

DRUGS (2)
  1. FOSCARBIDOPA\FOSLEVODOPA [Suspect]
     Active Substance: FOSCARBIDOPA\FOSLEVODOPA
     Indication: Multiple system atrophy
     Dosage: 240MG FOSLEVODOPA + 12MG FOSCARBIDOPA ?BASE DOSE 0.37 ML/H, HIGH DOSE 0.44 ML/H, LOW DOSE 0.28 ML...
     Route: 058
     Dates: start: 20240703
  2. FOSCARBIDOPA\FOSLEVODOPA [Suspect]
     Active Substance: FOSCARBIDOPA\FOSLEVODOPA
     Dosage: 240MG FOSLEVODOPA + 12MG FOSCARBIDOPA ?BASE DOSE 0.54 ML/H, HIGH DOSE 0.58ML/H, LOW DOSE 0.20 ML/...
     Route: 058

REACTIONS (10)
  - Abscess [Not Recovered/Not Resolved]
  - Pain in extremity [Not Recovered/Not Resolved]
  - Asthenia [Not Recovered/Not Resolved]
  - Weight decreased [Not Recovered/Not Resolved]
  - Decreased appetite [Not Recovered/Not Resolved]
  - Anaemia [Not Recovered/Not Resolved]
  - Leukocytosis [Not Recovered/Not Resolved]
  - Necrosis [Not Recovered/Not Resolved]
  - Decubitus ulcer [Not Recovered/Not Resolved]
  - Dehydration [Not Recovered/Not Resolved]

NARRATIVE: CASE EVENT DATE: 20251101
